FAERS Safety Report 4940083-3 (Version None)
Quarter: 2006Q1

REPORT INFORMATION
  Report Type: 
  Country: None (occurrence: None)
  Receive Date: 20060310
  Receipt Date: 20060207
  Transmission Date: 20060701
  Serious: Yes (Hospitalization)
  Sender: FDA-Public Use
  Company Number: 2006AP00618

PATIENT
  Age: 30380 Day
  Sex: Male
  Weight: 65 kg

DRUGS (4)
  1. IRESSA [Suspect]
     Indication: NON-SMALL CELL LUNG CANCER
     Route: 048
     Dates: start: 20060102, end: 20060207
  2. IRESSA [Suspect]
     Indication: LUNG ADENOCARCINOMA
     Route: 048
     Dates: start: 20060102, end: 20060207
  3. DOXABEN [Concomitant]
     Indication: HYPERTENSION
     Dosage: TAKEN FOR MANY YEARS
     Route: 048
  4. PROSCAR [Concomitant]
     Indication: HYPERTENSION
     Dosage: TAKEN FOR MANY YEARS
     Route: 048

REACTIONS (4)
  - ALANINE AMINOTRANSFERASE INCREASED [None]
  - ASPARTATE AMINOTRANSFERASE INCREASED [None]
  - DIZZINESS [None]
  - FALL [None]
